FAERS Safety Report 4424063-2 (Version None)
Quarter: 2004Q3

REPORT INFORMATION
  Report Type: 
  Country: None (occurrence: None)
  Receive Date: 20040806
  Receipt Date: 20040806
  Transmission Date: 20050211
  Serious: Yes (Hospitalization, Other)
  Sender: FDA-Public Use
  Company Number: None

PATIENT
  Age: 44 Year
  Sex: Male
  Weight: 97.6 kg

DRUGS (8)
  1. EPTIFIBATIDE (INTEGRILIN R ) [Suspect]
     Indication: ANTIPLATELET THERAPY
     Dosage: 2( 9.0 ML BOLUSES) 16 ML/HR IV
     Route: 040
     Dates: start: 20040719, end: 20040720
  2. HEPARIN [Suspect]
     Dosage: 4.885- UNITS IV
     Route: 042
     Dates: start: 20040719
  3. FENTANYL [Concomitant]
  4. MIDAZOLAM [Concomitant]
  5. CEFAZOLIN [Concomitant]
  6. ASPIRIN [Concomitant]
  7. PEPCID [Concomitant]
  8. CLOPIDOGREL [Concomitant]

REACTIONS (4)
  - BLOODY DISCHARGE [None]
  - GROIN PAIN [None]
  - POST PROCEDURAL COMPLICATION [None]
  - POST PROCEDURAL PAIN [None]
